FAERS Safety Report 5824208-3 (Version None)
Quarter: 2008Q3

REPORT INFORMATION
  Report Type: 
  Country: None (occurrence: None)
  Receive Date: 20080718
  Receipt Date: 20080522
  Transmission Date: 20090109
  Serious: Yes (Other)
  Sender: FDA-Public Use
  Company Number: US-WYE-H04249408

PATIENT
  Age: 75 Year
  Sex: Female
  Weight: 56.75 kg

DRUGS (2)
  1. ADVIL PM [Suspect]
     Indication: BACK PAIN
     Dosage: 2 CAPLETS AT BEDTIME  AS NEEDED, ORAL
     Route: 048
     Dates: start: 20070101, end: 20080520
  2. ADVIL PM [Suspect]
     Indication: RESTLESSNESS
     Dosage: 2 CAPLETS AT BEDTIME  AS NEEDED, ORAL
     Route: 048
     Dates: start: 20070101, end: 20080520

REACTIONS (1)
  - HANGOVER [None]
